FAERS Safety Report 6142768-2 (Version None)
Quarter: 2009Q2

REPORT INFORMATION
  Report Type: 
  Country: None (occurrence: None)
  Receive Date: 20090403
  Receipt Date: 20090320
  Transmission Date: 20091009
  Serious: Yes (Other)
  Sender: FDA-Public Use
  Company Number: US-BAYER-200914457NA

PATIENT
  Age: 63 Year
  Sex: Male
  Weight: 79 kg

DRUGS (43)
  1. FLUDARA [Suspect]
     Indication: CHRONIC LYMPHOCYTIC LEUKAEMIA
     Dosage: AS USED: 50 MG  UNIT DOSE: 25 MG/M2
     Route: 042
     Dates: start: 20070213, end: 20070220
  2. FLUDARA [Suspect]
     Dosage: AS USED: 50 MG  UNIT DOSE: 25 MG/M2
     Route: 042
     Dates: start: 20070319, end: 20070323
  3. FLUDARA [Suspect]
     Dosage: AS USED: 45 MG  UNIT DOSE: 25 MG/M2
     Route: 042
     Dates: start: 20080310, end: 20080314
  4. FLUDARA [Suspect]
     Dosage: AS USED: 50 MG  UNIT DOSE: 25 MG/M2
     Route: 042
     Dates: start: 20081027, end: 20081031
  5. FLUDARA [Suspect]
     Dosage: AS USED: 50 MG  UNIT DOSE: 25 MG/M2
     Route: 042
     Dates: start: 20081201, end: 20081205
  6. RITUXAN [Suspect]
     Indication: CHRONIC LYMPHOCYTIC LEUKAEMIA
     Dosage: AS USED: 710 MG
     Dates: start: 20080602, end: 20080602
  7. RITUXAN [Suspect]
     Dosage: AS USED: 500 MG
     Dates: start: 20080407, end: 20080407
  8. RITUXAN [Suspect]
     Dosage: AS USED: 700 MG
     Dates: start: 20070319, end: 20070319
  9. RITUXAN [Suspect]
     Dosage: AS USED: 700 MG
     Dates: start: 20070213, end: 20070213
  10. RITUXAN [Suspect]
     Dosage: AS USED: 710 MG
     Dates: start: 20090202, end: 20090202
  11. RITUXAN [Suspect]
     Dosage: AS USED: 710 MG
     Dates: start: 20090106, end: 20090106
  12. RITUXAN [Suspect]
     Dosage: AS USED: 710 MG
     Dates: start: 20081201, end: 20081201
  13. RITUXAN [Suspect]
     Dosage: AS USED: 710 MG
     Dates: start: 20081027, end: 20081027
  14. RITUXAN [Suspect]
     Dosage: AS USED: 710 MG
     Dates: start: 20080310, end: 20080310
  15. RITUXAN [Suspect]
     Dosage: AS USED: 210 MG
     Dates: start: 20080408, end: 20080408
  16. RITUXAN [Suspect]
     Dosage: AS USED: 710 MG
     Dates: start: 20080505, end: 20080505
  17. BACTRIM DS [Suspect]
     Indication: CHRONIC LYMPHOCYTIC LEUKAEMIA
     Dosage: M/W/F
     Dates: start: 20070209, end: 20090302
  18. DIPHENHYDRAMINE HYDROCHLORIDE [Concomitant]
  19. DIPHENHYDRAMINE HYDROCHLORIDE [Concomitant]
     Dosage: AS USED: 50 MG
  20. ACETAMINOPHEN [Concomitant]
  21. PROCHLORPERAZINE MALEATE [Concomitant]
     Indication: NAUSEA
     Dosage: Q6H
  22. DEMEROL [Concomitant]
  23. ZANTAC [Concomitant]
     Route: 048
  24. ASPIRIN [Concomitant]
     Dosage: TOTAL DAILY DOSE: 81 MG
     Route: 048
  25. NPH HUMAN INSULIN [Concomitant]
  26. ALLEGRA [Concomitant]
     Route: 048
  27. DIOVAN HCT [Concomitant]
     Route: 048
  28. SYNTHROID [Concomitant]
     Dosage: TOTAL DAILY DOSE: 150 ?G
     Route: 048
  29. LEXAPRO [Concomitant]
     Dosage: TOTAL DAILY DOSE: 20 MG
     Route: 048
  30. FLONASE [Concomitant]
  31. ALLOPURINOL [Concomitant]
     Dosage: TOTAL DAILY DOSE: 300 MG
     Route: 048
  32. ATROVENT [Concomitant]
  33. DEXAMETHASONE SODIUM PHOSPHATE [Concomitant]
     Dosage: AS USED: 10 MG
     Dates: start: 20080310, end: 20080312
  34. GRANISETRON HYDROCHLORIDE [Concomitant]
     Dosage: AS USED: 1000 MG
     Dates: start: 20080310, end: 20080314
  35. HUMALOG [Concomitant]
  36. SOLU-CORTEF [Concomitant]
     Dosage: AS USED: 100 MG
  37. MEPRON [Concomitant]
     Dosage: TOTAL DAILY DOSE: 10 ML
     Route: 048
  38. NEULASTA [Concomitant]
     Dosage: AS USED: 6 MG
     Dates: start: 20090203, end: 20090203
  39. NEULASTA [Concomitant]
     Dosage: AS USED: 6 MG
     Dates: start: 20081208, end: 20081208
  40. NEULASTA [Concomitant]
     Dosage: AS USED: 6 MG
     Dates: start: 20090106, end: 20090106
  41. FOSAMAX PLUS D [Concomitant]
     Route: 048
  42. CALCIUM PLUS D [Concomitant]
     Route: 048
  43. DAPSONE [Concomitant]
     Dosage: TOTAL DAILY DOSE: 100 MG
     Route: 048

REACTIONS (1)
  - AGRANULOCYTOSIS [None]
